FAERS Safety Report 7312279-7 (Version None)
Quarter: 2011Q1

REPORT INFORMATION
  Report Type: 
  Country: None (occurrence: None)
  Receive Date: 20110224
  Receipt Date: 20110214
  Transmission Date: 20110831
  Serious: Yes (Death)
  Sender: FDA-Public Use
  Company Number: B0693009A

PATIENT
  Sex: Female
  Weight: 75 kg

DRUGS (5)
  1. TAVANIC [Concomitant]
     Route: 065
  2. VANCOMYCIN [Concomitant]
     Route: 065
  3. ZANAMIVIR [Suspect]
     Dosage: 600MG TWICE PER DAY
     Route: 042
     Dates: start: 20110106, end: 20110108
  4. OSELTAMIVIR [Concomitant]
     Dosage: 150MG PER DAY
     Route: 048
  5. TIENAM [Concomitant]
     Route: 065

REACTIONS (4)
  - ISCHAEMIA [None]
  - HYPOXIA [None]
  - HAEMODYNAMIC INSTABILITY [None]
  - ACUTE RESPIRATORY DISTRESS SYNDROME [None]
